FAERS Safety Report 9392852 (Version 2)
Quarter: 2014Q1

REPORT INFORMATION
  Report Type: Spontaneous
  Country: CA (occurrence: CA)
  Receive Date: 20130710
  Receipt Date: 20140228
  Transmission Date: 20141002
  Serious: Yes (Other)
  Sender: FDA-Public Use
  Company Number: CA-ROCHE-1246813

PATIENT
  Sex: Male
  Weight: 77.5 kg

DRUGS (7)
  1. AVASTIN [Suspect]
     Indication: COLON CANCER METASTATIC
     Route: 042
     Dates: start: 2011
  2. AVASTIN [Suspect]
     Route: 042
     Dates: start: 20130709
  3. FOLINIC ACID [Suspect]
     Indication: COLON CANCER METASTATIC
     Route: 042
     Dates: start: 2011, end: 201109
  4. FLUOROURACIL [Suspect]
     Indication: COLON CANCER METASTATIC
     Route: 042
     Dates: start: 2011, end: 201109
  5. IRINOTECAN [Suspect]
     Indication: COLON CANCER METASTATIC
     Route: 042
     Dates: start: 2011, end: 201109
  6. ONDANSETRON [Concomitant]
     Indication: PREMEDICATION
  7. DECADRON [Concomitant]
     Indication: PREMEDICATION

REACTIONS (3)
  - Thrombosis [Unknown]
  - Disease progression [Unknown]
  - Nausea [Not Recovered/Not Resolved]
